FAERS Safety Report 16451443 (Version 2)
Quarter: 2019Q2

REPORT INFORMATION
  Report Type: Spontaneous
  Country: NZ (occurrence: NZ)
  Receive Date: 20190619
  Receipt Date: 20190620
  Transmission Date: 20190711
  Serious: Yes (Death, Life-Threatening, Other)
  Sender: FDA-Public Use
  Company Number: NZ-009507513-CNL-112642-NL

PATIENT
  Age: 40 Year
  Sex: Female
  Weight: 54 kg

DRUGS (5)
  1. HUMEGON [Suspect]
     Active Substance: MENOTROPINS
     Dosage: CONTINUING: NO
     Route: 030
     Dates: start: 19930823, end: 19930827
  2. BUSERELIN [Concomitant]
     Active Substance: BUSERELIN
     Indication: IN VITRO FERTILISATION
     Dosage: UNK DF, UNK
     Route: 065
     Dates: start: 19930726
  3. PREGNYL [Suspect]
     Active Substance: CHORIOGONADOTROPIN ALFA
     Dosage: CONTINUING: NO
     Route: 030
     Dates: start: 19930905, end: 19930905
  4. HUMEGON [Suspect]
     Active Substance: MENOTROPINS
     Indication: IN VITRO FERTILISATION
     Dosage: CONTINUING: NO
     Route: 030
     Dates: start: 19930819, end: 19930822
  5. PREGNYL [Suspect]
     Active Substance: CHORIOGONADOTROPIN ALFA
     Indication: IN VITRO FERTILISATION
     Dosage: DOSE TEXT: 28-AUG-93: 10000 U OF PREGNYL05-SEP-93: 2ND INJ OF PREGNYL: DOSE UNKNOWN, CONTINUING: NO
     Route: 030
     Dates: start: 19930828, end: 19930828

REACTIONS (2)
  - Cerebral infarction [Fatal]
  - Ovarian hyperstimulation syndrome [Fatal]
